FAERS Safety Report 11669733 (Version 1)
Quarter: 2015Q4

REPORT INFORMATION
  Report Type: Spontaneous
  Country: US (occurrence: US)
  Receive Date: 20151027
  Receipt Date: 20151027
  Transmission Date: 20160304
  Serious: No
  Sender: FDA-Public Use
  Company Number: US-ELI_LILLY_AND_COMPANY-US201005002119

PATIENT
  Age: 68 Year
  Sex: Female

DRUGS (13)
  1. ATIVAN [Concomitant]
     Active Substance: LORAZEPAM
     Dosage: 5 MG, 3/D
  2. CALCIUM CITRATE W/VITAMIN D NOS [Concomitant]
     Dosage: UNK, 3/D
  3. DOCUSATE SODIUM. [Concomitant]
     Active Substance: DOCUSATE SODIUM
     Dosage: 10 MG, UNK
  4. SPIRIVA [Concomitant]
     Active Substance: TIOTROPIUM BROMIDE MONOHYDRATE
     Dosage: UNK, DAILY (1/D)
  5. BENZONATATE. [Concomitant]
     Active Substance: BENZONATATE
     Dosage: 1 D/F, 3/D
  6. SIMVASTATIN. [Concomitant]
     Active Substance: SIMVASTATIN
     Dosage: 40 MG, DAILY (1/D)
  7. MAALOX ANTACID [Concomitant]
     Active Substance: ALUMINUM HYDROXIDE\DIMETHICONE\MAGNESIUM HYDROXIDE
  8. PRILOSEC [Concomitant]
     Active Substance: OMEPRAZOLE MAGNESIUM
     Dosage: 20 MG, DAILY (1/D)
  9. PREDNISONE. [Concomitant]
     Active Substance: PREDNISONE
     Dosage: 5 MG, DAILY (1/D)
  10. CITALOPRAM [Concomitant]
     Active Substance: CITALOPRAM HYDROBROMIDE
     Dosage: 20 MG, DAILY (1/D)
  11. DUONEB [Concomitant]
     Active Substance: ALBUTEROL SULFATE\IPRATROPIUM BROMIDE
     Dosage: UNK, 4/D
  12. SYMBICORT [Concomitant]
     Active Substance: BUDESONIDE\FORMOTEROL FUMARATE DIHYDRATE
     Dosage: 2 D/F, 2/D
  13. FORTEO [Suspect]
     Active Substance: TERIPARATIDE
     Indication: OSTEOPOROSIS
     Dosage: 20 UG, DAILY (1/D)
     Dates: start: 200812

REACTIONS (2)
  - Blood disorder [Recovering/Resolving]
  - Anaemia [Unknown]

NARRATIVE: CASE EVENT DATE: 20100202
